FAERS Safety Report 7071806-8 (Version None)
Quarter: 2010Q4

REPORT INFORMATION
  Report Type: 
  Country: None (occurrence: None)
  Receive Date: 20101029
  Receipt Date: 20100203
  Transmission Date: 20110411
  Serious: No
  Sender: FDA-Public Use
  Company Number: A0813375A

PATIENT
  Age: 74 Year
  Sex: Male
  Weight: 92.7 kg

DRUGS (4)
  1. ADVAIR DISKUS 100/50 [Suspect]
     Indication: CHRONIC OBSTRUCTIVE PULMONARY DISEASE
     Route: 055
     Dates: start: 20091022
  2. TRANCIN [Concomitant]
  3. BENADRYL [Concomitant]
  4. PRILOSEC [Concomitant]

REACTIONS (5)
  - APHONIA [None]
  - COUGH [None]
  - DYSPHONIA [None]
  - ILL-DEFINED DISORDER [None]
  - SPEECH DISORDER [None]
